FAERS Safety Report 17858189 (Version 2)
Quarter: 2020Q2

REPORT INFORMATION
  Report Type: Spontaneous
  Country: JP (occurrence: JP)
  Receive Date: 20200604
  Receipt Date: 20200610
  Transmission Date: 20200714
  Serious: Yes (Other)
  Sender: FDA-Public Use
  Company Number: JP-SA-2020SA140666

PATIENT

DRUGS (4)
  1. TS-1 [Suspect]
     Active Substance: GIMERACIL\OTERACIL\TEGAFUR
     Indication: OESOPHAGEAL CARCINOMA
     Route: 065
  2. DOCETAXEL. [Suspect]
     Active Substance: DOCETAXEL
     Indication: OESOPHAGEAL CARCINOMA
     Route: 041
  3. WARFARIN POTASSIUM [Concomitant]
     Active Substance: WARFARIN POTASSIUM
     Indication: MITRAL VALVE INCOMPETENCE
     Dosage: UNK
     Route: 048
  4. NEDAPLATIN [Suspect]
     Active Substance: NEDAPLATIN
     Indication: OESOPHAGEAL CARCINOMA
     Route: 065

REACTIONS (7)
  - Abdominal tenderness [Unknown]
  - Portal venous gas [Unknown]
  - Pneumatosis intestinalis [Unknown]
  - Peritoneal disorder [Unknown]
  - Gastrointestinal necrosis [Unknown]
  - Gastrointestinal tract mucosal discolouration [Unknown]
  - Abdominal pain [Unknown]
